FAERS Safety Report 14155822 (Version 1)
Quarter: 2017Q4

REPORT INFORMATION
  Report Type: Other
  Country: GB (occurrence: GB)
  Receive Date: 20171103
  Receipt Date: 20171103
  Transmission Date: 20180321
  Serious: Yes (Death, Other)
  Sender: FDA-Public Use
  Company Number: GB-HERITAGE PHARMACEUTICALS-2017HTG00329

PATIENT
  Age: 38 Year
  Sex: Male

DRUGS (3)
  1. FLUOXETINE [Suspect]
     Active Substance: FLUOXETINE HYDROCHLORIDE
     Dosage: UNK
  2. ZOLPIDEM [Suspect]
     Active Substance: ZOLPIDEM\ZOLPIDEM TARTRATE
     Dosage: UNK
  3. PRAZOSIN. [Suspect]
     Active Substance: PRAZOSIN
     Dosage: UNK

REACTIONS (5)
  - Somnambulism [Unknown]
  - Abnormal sleep-related event [Unknown]
  - Drug interaction [Unknown]
  - Sleep sex [Unknown]
  - Completed suicide [Fatal]

NARRATIVE: CASE EVENT DATE: 20170930
